FAERS Safety Report 13225955 (Version 2)
Quarter: 2017Q1

REPORT INFORMATION
  Report Type: Spontaneous
  Country: JP (occurrence: JP)
  Receive Date: 20170213
  Receipt Date: 20170328
  Transmission Date: 20170428
  Serious: No
  Sender: FDA-Public Use
  Company Number: JP-ELI_LILLY_AND_COMPANY-JP201702001988

PATIENT
  Age: 75 Year
  Sex: Male

DRUGS (3)
  1. TOVIAZ [Concomitant]
     Active Substance: FESOTERODINE FUMARATE
     Route: 048
  2. ZALUTIA [Suspect]
     Active Substance: TADALAFIL
     Indication: PRODUCT USED FOR UNKNOWN INDICATION
     Dosage: 5 MG, QD
     Route: 048
     Dates: end: 20170118
  3. NEOXY [Suspect]
     Active Substance: OXYBUTYNIN CHLORIDE
     Indication: PRODUCT USED FOR UNKNOWN INDICATION
     Dosage: UNK
     Route: 062
     Dates: end: 20170118

REACTIONS (1)
  - Visual field defect [Recovering/Resolving]
